FAERS Safety Report 4843999-1 (Version None)
Quarter: 2005Q4

REPORT INFORMATION
  Report Type: 
  Country: None (occurrence: None)
  Receive Date: 20051202
  Receipt Date: 20050613
  Transmission Date: 20060501
  Serious: No
  Sender: FDA-Public Use
  Company Number: US-GLAXOSMITHKLINE-A0562412A

PATIENT
  Age: 39 Year
  Sex: Female

DRUGS (4)
  1. AUGMENTIN [Suspect]
     Dosage: 500MG TWICE PER DAY
     Route: 048
     Dates: start: 20050609, end: 20050612
  2. PREVACID [Concomitant]
  3. ESTRADIOL INJ [Concomitant]
  4. LIPITOR [Concomitant]

REACTIONS (2)
  - DRUG INEFFECTIVE [None]
  - POOR QUALITY DRUG ADMINISTERED [None]
